FAERS Safety Report 25405361 (Version 1)
Quarter: 2025Q2

REPORT INFORMATION
  Report Type: Spontaneous
  Country: IN (occurrence: IN)
  Receive Date: 20250606
  Receipt Date: 20250606
  Transmission Date: 20250717
  Serious: Yes (Hospitalization, Other)
  Sender: Norvium Bioscience
  Company Number: IN-Norvium Bioscience LLC-080236

PATIENT
  Age: 68 Year
  Sex: Male

DRUGS (1)
  1. BACLOFEN [Suspect]
     Active Substance: BACLOFEN
     Indication: Hiccups
     Dates: start: 202502, end: 202502

REACTIONS (6)
  - Poisoning [Unknown]
  - Rebound psychosis [Unknown]
  - Toxic encephalopathy [Unknown]
  - Hallucination [Recovered/Resolved]
  - Delirium [Recovered/Resolved]
  - Disorientation [Recovered/Resolved]

NARRATIVE: CASE EVENT DATE: 20250201
